FAERS Safety Report 5749405-7 (Version None)
Quarter: 2008Q2

REPORT INFORMATION
  Report Type: 
  Country: None (occurrence: None)
  Receive Date: 20080527
  Receipt Date: 20080425
  Transmission Date: 20081010
  Serious: No
  Sender: FDA-Public Use
  Company Number: US-BAYER-US-2007-023705

PATIENT
  Age: 35 Year
  Sex: Female
  Weight: 53 kg

DRUGS (1)
  1. MIRENA [Suspect]
     Indication: CONTRACEPTION
     Route: 015
     Dates: start: 20070411

REACTIONS (5)
  - ANXIETY [None]
  - BREAST TENDERNESS [None]
  - CONDITION AGGRAVATED [None]
  - HORMONE LEVEL ABNORMAL [None]
  - MOOD ALTERED [None]
